FAERS Safety Report 9632457 (Version 3)
Quarter: 2013Q4

REPORT INFORMATION
  Report Type: Report from Study
  Country: US (occurrence: US)
  Receive Date: 20131018
  Receipt Date: 20131204
  Transmission Date: 20140711
  Serious: Yes (Hospitalization)
  Sender: FDA-Public Use
  Company Number: US-JNJFOC-20130809720

PATIENT
  Age: 77 Year
  Sex: Male
  Weight: 70.31 kg

DRUGS (24)
  1. XARELTO [Suspect]
     Indication: THROMBOSIS PROPHYLAXIS
     Route: 048
     Dates: start: 20130718, end: 20130811
  2. XARELTO [Suspect]
     Indication: THROMBOSIS PROPHYLAXIS
     Route: 048
     Dates: start: 20130718, end: 20130811
  3. XARELTO [Suspect]
     Indication: KNEE ARTHROPLASTY
     Route: 048
     Dates: start: 20130718, end: 20130811
  4. COUMADIN [Suspect]
     Indication: THROMBOSIS PROPHYLAXIS
     Route: 065
  5. OXYCODONE [Concomitant]
     Indication: PAIN
     Dosage: 5MG EVERY 4 HOURS AS NEEDED UP TO 2 TABLETS EVERY 4 HOURS
     Route: 048
     Dates: start: 201307
  6. OXYCODONE [Concomitant]
     Indication: KNEE OPERATION
     Dosage: 5MG EVERY 4 HOURS AS NEEDED UP TO 2 TABLETS EVERY 4 HOURS
     Route: 048
     Dates: start: 201307
  7. MORPHINE [Concomitant]
     Indication: KNEE OPERATION
     Route: 065
  8. COMPAZINE [Concomitant]
     Route: 065
  9. HCTZ (HYDROCHLOROTHIAZIDE) [Concomitant]
     Dosage: 3 CAPSULES OF 12.5 MG
     Route: 065
  10. ALPRAZOLAM [Concomitant]
     Indication: ANXIETY
     Route: 048
  11. MELATONIN [Concomitant]
     Indication: INSOMNIA
     Route: 048
  12. ZOLPIDEM [Concomitant]
     Indication: INSOMNIA
     Route: 048
  13. APRISO [Concomitant]
     Indication: PRODUCT USED FOR UNKNOWN INDICATION
     Route: 048
  14. DILTIAZEM CD [Concomitant]
     Indication: PRODUCT USED FOR UNKNOWN INDICATION
     Route: 048
  15. LANSOPRAZOLE [Concomitant]
     Indication: PRODUCT USED FOR UNKNOWN INDICATION
     Route: 048
  16. DIOVAN [Concomitant]
     Indication: PRODUCT USED FOR UNKNOWN INDICATION
     Route: 048
  17. POTASSIUM CHLORIDE [Concomitant]
     Indication: PRODUCT USED FOR UNKNOWN INDICATION
     Route: 048
  18. MELOXICAM [Concomitant]
     Indication: PRODUCT USED FOR UNKNOWN INDICATION
     Route: 048
  19. TERAZOSIN [Concomitant]
     Indication: PRODUCT USED FOR UNKNOWN INDICATION
     Route: 048
  20. TERAZOSIN [Concomitant]
     Indication: PRODUCT USED FOR UNKNOWN INDICATION
     Route: 048
  21. LOVASTATIN [Concomitant]
     Indication: PRODUCT USED FOR UNKNOWN INDICATION
     Route: 048
  22. CALCIUM 600 AND VITAMIN D [Concomitant]
     Indication: PRODUCT USED FOR UNKNOWN INDICATION
     Route: 048
  23. CARDIZEM [Concomitant]
     Indication: PRODUCT USED FOR UNKNOWN INDICATION
     Route: 065
  24. LOVENOX [Concomitant]
     Indication: PRODUCT USED FOR UNKNOWN INDICATION
     Route: 065

REACTIONS (6)
  - Cerebrovascular accident [Recovered/Resolved]
  - Dystonia [Recovered/Resolved]
  - Hypoxia [Recovered/Resolved]
  - Nausea [Recovered/Resolved]
  - Abdominal discomfort [Recovering/Resolving]
  - Presyncope [Recovered/Resolved]
